FAERS Safety Report 26186194 (Version 1)
Quarter: 2025Q4

REPORT INFORMATION
  Report Type: Spontaneous
  Country: US (occurrence: US)
  Receive Date: 20251222
  Receipt Date: 20251222
  Transmission Date: 20260117
  Serious: No
  Sender: ROCHE
  Company Number: US-ROCHE-10000462536

PATIENT
  Age: 22 Year
  Sex: Male

DRUGS (5)
  1. XOLAIR [Suspect]
     Active Substance: OMALIZUMAB
     Indication: Product used for unknown indication
     Route: 058
  2. DUPIXENT [Suspect]
     Active Substance: DUPILUMAB
     Indication: Product used for unknown indication
     Route: 058
  3. PIMECROLIMUS [Concomitant]
     Active Substance: PIMECROLIMUS
  4. DOXYCYCLINE [Concomitant]
     Active Substance: DOXYCYCLINE
  5. AIRSUPRA [BUDESONIDE;SALBUTAMOL] [Concomitant]

REACTIONS (2)
  - Pruritus [Unknown]
  - Urticaria [Unknown]
